FAERS Safety Report 22314904 (Version 2)
Quarter: 2023Q2

REPORT INFORMATION
  Report Type: Spontaneous
  Country: IT (occurrence: IT)
  Receive Date: 20230512
  Receipt Date: 20230525
  Transmission Date: 20230722
  Serious: Yes (Hospitalization)
  Sender: FDA-Public Use
  Company Number: IT-TEVA-2023-IT-2886508

PATIENT
  Age: 43 Year
  Sex: Female

DRUGS (5)
  1. CARBOPLATIN [Suspect]
     Active Substance: CARBOPLATIN
     Indication: Cervix carcinoma stage IV
     Route: 065
     Dates: start: 2021
  2. PACLITAXEL [Suspect]
     Active Substance: PACLITAXEL
     Indication: Cervix carcinoma stage IV
     Route: 065
     Dates: start: 2021
  3. RUXOLITINIB [Suspect]
     Active Substance: RUXOLITINIB
     Indication: Cervix carcinoma stage IV
     Dosage: 10 MILLIGRAM DAILY;
     Route: 065
     Dates: start: 202110, end: 202112
  4. PIQRAY [Suspect]
     Active Substance: ALPELISIB
     Indication: Cervix carcinoma stage IV
     Dosage: 300 MILLIGRAM DAILY;
     Route: 048
     Dates: start: 202110, end: 202112
  5. CEFTRIAXONE [Concomitant]
     Active Substance: CEFTRIAXONE
     Indication: Evidence based treatment
     Route: 065
     Dates: start: 20210622

REACTIONS (3)
  - Rash [Unknown]
  - Hyperglycaemia [Unknown]
  - Drug ineffective [Unknown]

NARRATIVE: CASE EVENT DATE: 20210101
